FAERS Safety Report 21286005 (Version 1)
Quarter: 2022Q3

REPORT INFORMATION
  Report Type: Spontaneous
  Country: US (occurrence: None)
  Receive Date: 20220901
  Receipt Date: 20220901
  Transmission Date: 20221026
  Serious: No
  Sender: FDA-Public Use
  Company Number: None

PATIENT
  Age: 65 Year
  Sex: Female

DRUGS (1)
  1. COSENTYX [Suspect]
     Active Substance: SECUKINUMAB
     Dosage: OTHER FREQUENCY : OTHER;?
     Route: 058
     Dates: start: 202003, end: 202201

REACTIONS (3)
  - COVID-19 [None]
  - Allergy to arthropod sting [None]
  - Therapy interrupted [None]

NARRATIVE: CASE EVENT DATE: 20220215
